FAERS Safety Report 7765521-2 (Version None)
Quarter: 2011Q3

REPORT INFORMATION
  Report Type: 
  Country: None (occurrence: None)
  Receive Date: 20110906
  Receipt Date: 20110513
  Transmission Date: 20111222
  Serious: No
  Sender: FDA-Public Use
  Company Number: 201104032

PATIENT
  Age: 69 Year
  Sex: Male

DRUGS (3)
  1. LIDOCAINE [Suspect]
     Dosage: INJECTION
     Dates: start: 20110203, end: 20110203
  2. XIAFLEX [Suspect]
     Indication: DUPUYTREN'S CONTRACTURE
     Dosage: 0.58 MG, 1 IN 1 D, INTRALESIONAL
     Route: 026
     Dates: start: 20110202, end: 20110202
  3. ANESTHETICS, LOCAL (ANESTHETICS, LOCAL) [Suspect]
     Dosage: INJECTION
     Dates: start: 20110303, end: 20110303

REACTIONS (6)
  - INJECTION SITE HAEMATOMA [None]
  - INJECTION [None]
  - DRUG INEFFECTIVE [None]
  - INJECTION SITE PAIN [None]
  - INJECTION SITE SWELLING [None]
  - WOUND [None]
